FAERS Safety Report 5155985-5 (Version None)
Quarter: 2006Q4

REPORT INFORMATION
  Report Type: 
  Country: None (occurrence: None)
  Receive Date: 20061122
  Receipt Date: 20061101
  Transmission Date: 20070319
  Serious: Yes (Disabling)
  Sender: FDA-Public Use
  Company Number: 2006GB01993

PATIENT
  Age: 28351 Day
  Sex: Male
  Weight: 90 kg

DRUGS (6)
  1. OMEPRAZOLE [Suspect]
     Indication: PROPHYLAXIS
     Route: 048
     Dates: start: 20061016, end: 20061102
  2. OMEPRAZOLE [Suspect]
     Indication: PEPTIC ULCER
     Route: 048
     Dates: start: 20061016, end: 20061102
  3. PREDNISOLONE [Concomitant]
     Route: 048
     Dates: start: 20061016, end: 20061031
  4. ALENDRONIC ACID [Concomitant]
     Route: 048
     Dates: start: 20061016, end: 20061031
  5. CALCICHEW [Concomitant]
  6. ASPIRIN [Concomitant]
     Route: 048
     Dates: start: 20061016, end: 20061031

REACTIONS (1)
  - MYOSITIS [None]
